FAERS Safety Report 4491196-4 (Version None)
Quarter: 2004Q3

REPORT INFORMATION
  Report Type: 
  Country: None (occurrence: None)
  Receive Date: 20040927
  Receipt Date: 20040803
  Transmission Date: 20050211
  Serious: No
  Sender: FDA-Public Use
  Company Number: USA040874506

PATIENT
  Age: 46 Year
  Sex: Female
  Weight: 80 kg

DRUGS (3)
  1. STRATTERA [Suspect]
     Indication: ATTENTION DEFICIT/HYPERACTIVITY DISORDER
     Dosage: 25 MG DAY
     Dates: start: 20040619
  2. DIOVAN [Concomitant]
  3. LIPITOR [Concomitant]

REACTIONS (4)
  - BLOOD PRESSURE INCREASED [None]
  - GLAUCOMA [None]
  - OEDEMA PERIPHERAL [None]
  - VISION BLURRED [None]
